FAERS Safety Report 4848853-7 (Version None)
Quarter: 2005Q4

REPORT INFORMATION
  Report Type: 
  Country: None (occurrence: None)
  Receive Date: 20051121
  Receipt Date: 20050817
  Transmission Date: 20060501
  Serious: Yes (Hospitalization)
  Sender: FDA-Public Use
  Company Number: 05P-163-0309265-00

PATIENT
  Age: 63 Year
  Sex: Male

DRUGS (7)
  1. DEPAKOTE ER [Suspect]
     Indication: MOOD SWINGS
     Dosage: 500 MG, 2 IN 1 D, PER ORAL
     Route: 048
     Dates: start: 20040101, end: 20050818
  2. BUPROPION HYDROCHLORIDE [Concomitant]
  3. LANSOPRAZOLE [Concomitant]
  4. CLONAZEPAM [Concomitant]
  5. ZIPRASIDONE HYDROCHLORIDE [Concomitant]
  6. CYMBOLTA [Concomitant]
  7. GLIMEPIRIDE [Concomitant]

REACTIONS (2)
  - MAJOR DEPRESSION [None]
  - PLATELET COUNT DECREASED [None]
